FAERS Safety Report 5512988-6 (Version None)
Quarter: 2007Q4

REPORT INFORMATION
  Report Type: 
  Country: None (occurrence: None)
  Receive Date: 20071112
  Receipt Date: 20071101
  Transmission Date: 20080405
  Serious: Yes (Hospitalization)
  Sender: FDA-Public Use
  Company Number: US-AMGEN-US206731

PATIENT
  Sex: Female
  Weight: 77.2 kg

DRUGS (2)
  1. ENBREL [Suspect]
     Indication: RHEUMATOID ARTHRITIS
     Route: 058
     Dates: start: 20021206, end: 20061025
  2. IBUPROFEN [Concomitant]
     Route: 065

REACTIONS (2)
  - LEUKOCYTOCLASTIC VASCULITIS [None]
  - PSEUDOMONAS INFECTION [None]
